FAERS Safety Report 8397177-2 (Version None)
Quarter: 2012Q2

REPORT INFORMATION
  Report Type: 
  Country: None (occurrence: None)
  Receive Date: 20120530
  Receipt Date: 20120518
  Transmission Date: 20120825
  Serious: Yes (Other)
  Sender: FDA-Public Use
  Company Number: DE-PFIZER INC-2012033863

PATIENT
  Age: 25 Year
  Sex: Female
  Weight: 74 kg

DRUGS (4)
  1. ACTRAPID HUMAN [Concomitant]
     Indication: GESTATIONAL DIABETES
     Dosage: 40 U, 1 IN 1 D
     Route: 058
  2. PROTAPHAN [Concomitant]
     Indication: GESTATIONAL DIABETES
     Dosage: 35 U, 1 IN 1 D
     Route: 058
  3. SERTRALINE HYDROCHLORIDE [Suspect]
     Indication: PERSONALITY DISORDER
     Dosage: 150 MG, 1X/DAY
     Route: 048
  4. RISPERDAL [Suspect]
     Indication: PERSONALITY DISORDER
     Dosage: 1 MG, 1X/DAY
     Route: 048
     Dates: start: 20101207, end: 20110901

REACTIONS (3)
  - POLYHYDRAMNIOS [None]
  - CAESAREAN SECTION [None]
  - GESTATIONAL DIABETES [None]
